FAERS Safety Report 20946265 (Version 1)
Quarter: 2022Q2

REPORT INFORMATION
  Report Type: Report from Study
  Country: US (occurrence: US)
  Receive Date: 20220610
  Receipt Date: 20220610
  Transmission Date: 20220721
  Serious: Yes (Other)
  Sender: FDA-Public Use
  Company Number: US-KOREA IPSEN Pharma-2022-05501

PATIENT
  Age: 59 Year
  Sex: Female

DRUGS (1)
  1. SOMATULINE DEPOT [Suspect]
     Active Substance: LANREOTIDE ACETATE
     Indication: Carcinoid tumour of the small bowel
     Dosage: 120 MG/ 0.5 ML EVERY 4 WEEKS
     Route: 058
     Dates: start: 201703

REACTIONS (16)
  - Fall [Recovering/Resolving]
  - Hepatic neoplasm [Recovering/Resolving]
  - Pelvic neoplasm [Recovering/Resolving]
  - Aortic aneurysm [Recovering/Resolving]
  - Weight increased [Recovering/Resolving]
  - Glycosylated haemoglobin increased [Recovering/Resolving]
  - Swelling [Recovering/Resolving]
  - Contusion [Recovering/Resolving]
  - Fatigue [Recovering/Resolving]
  - Nausea [Recovering/Resolving]
  - Diarrhoea [Recovering/Resolving]
  - Blood pressure fluctuation [Recovering/Resolving]
  - Blood cholesterol abnormal [Recovering/Resolving]
  - Depression [Recovering/Resolving]
  - Anxiety [Recovering/Resolving]
  - Malaise [Recovering/Resolving]

NARRATIVE: CASE EVENT DATE: 20220501
